FAERS Safety Report 7609375-3 (Version None)
Quarter: 2011Q3

REPORT INFORMATION
  Report Type: 
  Country: None (occurrence: None)
  Receive Date: 20110714
  Receipt Date: 20110712
  Transmission Date: 20111222
  Serious: Yes (Hospitalization)
  Sender: FDA-Public Use
  Company Number: PHHO2008US01040

PATIENT
  Sex: Male
  Weight: 67.12 kg

DRUGS (7)
  1. PERCOCET [Concomitant]
  2. LIPITOR [Concomitant]
     Indication: HYPERLIPIDAEMIA
  3. NO TREATMENT RECEIVED [Suspect]
     Indication: DEMENTIA ALZHEIMER'S TYPE
     Route: 062
     Dates: start: 20071202, end: 20071230
  4. ATENOLOL [Concomitant]
     Indication: HYPERTENSION
  5. TYLENOL-500 [Concomitant]
  6. EXELON [Suspect]
     Indication: DEMENTIA ALZHEIMER'S TYPE
  7. CITALOPRAM HYDROBROMIDE [Concomitant]
     Indication: DEPRESSION

REACTIONS (5)
  - OBSTRUCTIVE UROPATHY [None]
  - PROSTATIC OBSTRUCTION [None]
  - DEPRESSED LEVEL OF CONSCIOUSNESS [None]
  - RENAL FAILURE ACUTE [None]
  - URINE OUTPUT DECREASED [None]
